FAERS Safety Report 20595097 (Version 2)
Quarter: 2022Q3

REPORT INFORMATION
  Report Type: Spontaneous
  Country: BR (occurrence: BR)
  Receive Date: 20220315
  Receipt Date: 20220901
  Transmission Date: 20221027
  Serious: Yes (Congenital Anomaly, Other)
  Sender: FDA-Public Use
  Company Number: BR-JNJFOC-20220320318

PATIENT

DRUGS (1)
  1. REMICADE [Suspect]
     Active Substance: INFLIXIMAB
     Indication: Product used for unknown indication
     Route: 064

REACTIONS (2)
  - Hydrocephalus [Unknown]
  - Foetal exposure during pregnancy [Unknown]
